FAERS Safety Report 16169974 (Version 1)
Quarter: 2019Q2

REPORT INFORMATION
  Report Type: Spontaneous
  Country: US (occurrence: US)
  Receive Date: 20190305
  Receipt Date: 20190305
  Transmission Date: 20190711
  Serious: No
  Sender: FDA-Public Use
  Company Number: None

PATIENT

DRUGS (10)
  1. JANTOVEN [Concomitant]
     Active Substance: WARFARIN SODIUM
  2. AMIOIARONE [Concomitant]
  3. DIGITEK [Concomitant]
     Active Substance: DIGOXIN
  4. SILDENAFIL. [Suspect]
     Active Substance: SILDENAFIL
     Indication: PULMONARY HYPERTENSION
     Route: 048
     Dates: start: 20180724
  5. CITRACAL [Concomitant]
     Active Substance: CALCIUM CITRATE
  6. CO-Q 10 [Concomitant]
     Active Substance: UBIDECARENONE
  7. BIOTIN [Suspect]
     Active Substance: BIOTIN
  8. VALSARTAN. [Concomitant]
     Active Substance: VALSARTAN
  9. MULTIPLE-VITAMIN [Concomitant]
  10. OMEGA-3 ACIDS [Concomitant]
     Active Substance: OMEGA-3 FATTY ACIDS

REACTIONS (2)
  - Catheterisation cardiac [None]
  - Echocardiogram [None]

NARRATIVE: CASE EVENT DATE: 20180218
